FAERS Safety Report 7710818-5 (Version None)
Quarter: 2011Q3

REPORT INFORMATION
  Report Type: 
  Country: None (occurrence: None)
  Receive Date: 20110825
  Receipt Date: 20110606
  Transmission Date: 20111222
  Serious: Yes (Hospitalization)
  Sender: FDA-Public Use
  Company Number: FR-ABBOTT-11P-056-0730270-00

PATIENT
  Sex: Male
  Weight: 81 kg

DRUGS (8)
  1. ENOXAPARIN [Concomitant]
     Indication: PRODUCT USED FOR UNKNOWN INDICATION
     Route: 058
     Dates: start: 20110517
  2. ACETYLSALICYATE [Concomitant]
     Indication: PRODUCT USED FOR UNKNOWN INDICATION
     Route: 048
     Dates: start: 20110517
  3. INSULIN [Concomitant]
     Indication: HYPERGLYCAEMIA
     Route: 042
     Dates: start: 20110517
  4. ACETAMINOPHEN [Concomitant]
     Indication: PROCEDURAL PAIN
     Route: 042
     Dates: start: 20110517
  5. ESOMEPRAZOLE MAGNESIUM [Concomitant]
     Indication: PROPHYLAXIS
     Route: 048
     Dates: start: 20110517
  6. NEFOPAM [Concomitant]
     Indication: PAIN
     Route: 042
     Dates: start: 20110517
  7. SEVOFLURANE [Suspect]
     Indication: ANAESTHESIA
     Route: 055
     Dates: start: 20110517, end: 20110517
  8. ATORVASTATIN CALCIUM [Concomitant]
     Indication: DYSLIPIDAEMIA
     Dates: start: 20110517

REACTIONS (1)
  - MYOCARDIAL INFARCTION [None]
